FAERS Safety Report 22030824 (Version 2)
Quarter: 2023Q1

REPORT INFORMATION
  Report Type: Spontaneous
  Country: CN (occurrence: CN)
  Receive Date: 20230223
  Receipt Date: 20230227
  Transmission Date: 20230417
  Serious: Yes (Other)
  Sender: FDA-Public Use
  Company Number: CN-PFIZER INC-PV202300034493

PATIENT
  Age: 17 Month
  Sex: Male
  Weight: 10 kg

DRUGS (4)
  1. METHOTREXATE SODIUM [Suspect]
     Active Substance: METHOTREXATE SODIUM
     Indication: Chemotherapy
     Dosage: 10 MG, 1X/DAY
     Route: 037
     Dates: start: 20230209, end: 20230209
  2. CYTARABINE [Concomitant]
     Active Substance: CYTARABINE
     Indication: Chemotherapy
     Dosage: 0.03 G, 1X/DAY
     Route: 037
     Dates: start: 20230209, end: 20230209
  3. DEXAMETHASONE SODIUM PHOSPHATE [Concomitant]
     Active Substance: DEXAMETHASONE SODIUM PHOSPHATE
     Indication: Chemotherapy
     Dosage: 2.5 MG, 1X/DAY
     Route: 037
     Dates: start: 20230209, end: 20230209
  4. ONDANSETRON HYDROCHLORIDE [Concomitant]
     Active Substance: ONDANSETRON HYDROCHLORIDE
     Indication: Antiemetic supportive care
     Dosage: 2.5 MG, 1X/DAY
     Route: 041
     Dates: start: 20230208, end: 20230208

REACTIONS (4)
  - Dermatitis allergic [Recovering/Resolving]
  - Rash pruritic [Recovering/Resolving]
  - Transaminases increased [Recovering/Resolving]
  - Drug-induced liver injury [Recovering/Resolving]

NARRATIVE: CASE EVENT DATE: 20230213
